FAERS Safety Report 7091121-6 (Version None)
Quarter: 2010Q4

REPORT INFORMATION
  Report Type: 
  Country: None (occurrence: None)
  Receive Date: 20101109
  Receipt Date: 20101027
  Transmission Date: 20110411
  Serious: Yes (Hospitalization)
  Sender: FDA-Public Use
  Company Number: JP-ROCHE-695022

PATIENT
  Sex: Female
  Weight: 49 kg

DRUGS (3)
  1. AVASTIN [Suspect]
     Indication: COLON CANCER METASTATIC
     Dosage: DISCONTINUED.
     Route: 041
     Dates: start: 20100318
  2. KYTRIL [Suspect]
     Indication: PROPHYLAXIS OF NAUSEA AND VOMITING
     Route: 041
     Dates: start: 20100318, end: 20100318
  3. ELPLAT [Suspect]
     Indication: COLON CANCER METASTATIC
     Dosage: NOTE: DISCONTINUED AFTER A SMALL DOSE.
     Route: 041
     Dates: start: 20100318, end: 20100318

REACTIONS (3)
  - HYPERTENSIVE EMERGENCY [None]
  - PLEURAL EFFUSION [None]
  - WHITE BLOOD CELL COUNT INCREASED [None]
